FAERS Safety Report 7821161-8 (Version None)
Quarter: 2011Q4

REPORT INFORMATION
  Report Type: 
  Country: None (occurrence: None)
  Receive Date: 20111018
  Receipt Date: 20110802
  Transmission Date: 20120403
  Serious: No
  Sender: FDA-Public Use
  Company Number: US-ASTRAZENECA-2010SE53112

PATIENT
  Age: 58 Year
  Sex: Female
  Weight: 65.8 kg

DRUGS (10)
  1. NEXIUM [Suspect]
     Indication: DYSPEPSIA
     Route: 048
     Dates: end: 20090101
  2. RANITIDINE [Concomitant]
     Indication: DYSPEPSIA
     Route: 048
  3. MAGNESIUM OXIDE [Concomitant]
     Route: 048
  4. XANAX [Concomitant]
     Indication: PANIC ATTACK
     Route: 048
  5. LISINOPRIL [Concomitant]
     Indication: HYPERTENSION
     Route: 048
  6. CRESTOR [Suspect]
     Indication: HYPERCHOLESTEROLAEMIA
     Route: 048
     Dates: start: 20070101
  7. PLAVIX [Concomitant]
     Indication: CARDIAC DISORDER
     Route: 048
  8. NEURONTIN [Suspect]
     Indication: TRIGEMINAL NEURALGIA
     Route: 048
  9. SYMBICORT [Suspect]
     Route: 055
     Dates: start: 20100801
  10. COREG [Concomitant]
     Indication: CARDIAC DISORDER
     Route: 048

REACTIONS (6)
  - CHRONIC OBSTRUCTIVE PULMONARY DISEASE [None]
  - DRUG DOSE OMISSION [None]
  - DYSPNOEA [None]
  - TRIGEMINAL NEURALGIA [None]
  - DYSPEPSIA [None]
  - BODY HEIGHT DECREASED [None]
